FAERS Safety Report 5812816-5 (Version None)
Quarter: 2008Q3

REPORT INFORMATION
  Report Type: 
  Country: None (occurrence: None)
  Receive Date: 20080717
  Receipt Date: 20080707
  Transmission Date: 20090109
  Serious: Yes (Other)
  Sender: FDA-Public Use
  Company Number: US-SOLVAY-00208003032

PATIENT
  Age: 1 Day
  Sex: Female
  Weight: 2.3 kg

DRUGS (5)
  1. VITAMIN TAB [Concomitant]
     Indication: ACCIDENTAL EXPOSURE
     Dosage: DAILY DOSE:  UNKNOWN
     Route: 064
     Dates: start: 20040101, end: 20040101
  2. MARINOL [Suspect]
     Indication: ACCIDENTAL EXPOSURE
     Dosage: DAILY DOSE:  UNKNOWN
     Route: 064
     Dates: end: 20040101
  3. LEGALIZED MARIJUANA [Suspect]
     Indication: ACCIDENTAL EXPOSURE
     Dosage: DAILY DOSE:  UNKNOWN
     Route: 055
     Dates: end: 20040101
  4. KLONOPIN [Concomitant]
     Indication: ACCIDENTAL EXPOSURE
     Dosage: DAILY DOSE:  UNKNOWN
     Route: 064
  5. PROPRANOLOL [Concomitant]
     Indication: ACCIDENTAL EXPOSURE
     Dosage: DAILY DOSE:  UNKNOWN
     Route: 064

REACTIONS (6)
  - AUTISM [None]
  - DYSMORPHISM [None]
  - FAILURE TO THRIVE [None]
  - HYPERAESTHESIA [None]
  - UMBILICAL CORD VASCULAR DISORDER [None]
  - VOMITING [None]
